FAERS Safety Report 18410753 (Version 1)
Quarter: 2020Q4

REPORT INFORMATION
  Report Type: Spontaneous
  Country: CA (occurrence: CA)
  Receive Date: 20201021
  Receipt Date: 20201021
  Transmission Date: 20210114
  Serious: Yes (Other)
  Sender: FDA-Public Use
  Company Number: NVSC2020CA279864

PATIENT
  Age: 89 Year
  Sex: Male

DRUGS (1)
  1. CEFTRIAXONE SODIUM. [Suspect]
     Active Substance: CEFTRIAXONE SODIUM
     Indication: BACTERAEMIA
     Dosage: 2 G, QD
     Route: 042

REACTIONS (2)
  - No reaction on previous exposure to drug [Unknown]
  - Infusion related reaction [Unknown]
